FAERS Safety Report 14024882 (Version 6)
Quarter: 2018Q4

REPORT INFORMATION
  Report Type: Report from Study
  Country: JP (occurrence: JP)
  Receive Date: 20170929
  Receipt Date: 20181219
  Transmission Date: 20190204
  Serious: Yes (Death, Hospitalization, Other)
  Sender: FDA-Public Use
  Company Number: JP-INCYTE CORPORATION-2016IN006978

PATIENT

DRUGS (5)
  1. JAKAVI [Suspect]
     Active Substance: RUXOLITINIB
     Indication: MYELOFIBROSIS
     Dosage: 5 MG, BID
     Route: 048
     Dates: start: 20160701, end: 20160708
  2. JAKAVI [Suspect]
     Active Substance: RUXOLITINIB
     Dosage: 20 MG, BID
     Route: 048
     Dates: start: 20160725, end: 20160801
  3. JAKAVI [Suspect]
     Active Substance: RUXOLITINIB
     Dosage: 15 MG, BID
     Route: 048
     Dates: start: 20160717, end: 20160724
  4. JAKAVI [Suspect]
     Active Substance: RUXOLITINIB
     Dosage: 25 MG, BID
     Route: 048
     Dates: start: 20160802, end: 20170906
  5. JAKAVI [Suspect]
     Active Substance: RUXOLITINIB
     Dosage: 10 MG, BID
     Route: 048
     Dates: start: 20160709, end: 20160716

REACTIONS (8)
  - Iron deficiency anaemia [Recovered/Resolved]
  - Dehydration [Fatal]
  - Dysphagia [Fatal]
  - Performance status decreased [Fatal]
  - Dyspnoea [Fatal]
  - Pneumonia [Fatal]
  - Respiratory failure [Fatal]
  - Primary myelofibrosis [Fatal]

NARRATIVE: CASE EVENT DATE: 20170905
